FAERS Safety Report 23277340 (Version 1)
Quarter: 2023Q4

REPORT INFORMATION
  Report Type: Spontaneous
  Country: US (occurrence: None)
  Receive Date: 20231208
  Receipt Date: 20231208
  Transmission Date: 20240110
  Serious: Yes (Death)
  Sender: FDA-Public Use
  Company Number: None

PATIENT
  Age: 81 Year
  Sex: Male

DRUGS (1)
  1. CINACALCET [Suspect]
     Active Substance: CINACALCET
     Indication: Product used for unknown indication
     Dosage: 1 CAPSULE ONE WEEKLY BY MOUTH?
     Route: 048
     Dates: start: 20230524

REACTIONS (1)
  - Death [None]

NARRATIVE: CASE EVENT DATE: 20231206
